FAERS Safety Report 11129539 (Version 2)
Quarter: 2015Q2

REPORT INFORMATION
  Report Type: Spontaneous
  Country: CH (occurrence: CH)
  Receive Date: 20150521
  Receipt Date: 20150522
  Transmission Date: 20150821
  Serious: Yes (Hospitalization)
  Sender: FDA-Public Use
  Company Number: CH-ASTRAZENECA-2015SE44917

PATIENT
  Age: 25113 Day
  Sex: Female
  Weight: 56 kg

DRUGS (4)
  1. AMLODIPINE [Interacting]
     Active Substance: AMLODIPINE BESYLATE
     Indication: ESSENTIAL HYPERTENSION
     Route: 048
     Dates: end: 20150311
  2. CANDESARTAN CILEXETIL AND HYDROCHLOROTHIAZIDE [Interacting]
     Active Substance: CANDESARTAN CILEXETIL\HYDROCHLOROTHIAZIDE
     Indication: ESSENTIAL HYPERTENSION
     Dosage: 16 MG; 1 DF EVERY DAY
     Route: 048
     Dates: end: 20150311
  3. OLFEN [Suspect]
     Active Substance: DICLOFENAC SODIUM
     Indication: ARTHRALGIA
     Route: 048
     Dates: end: 20150311
  4. BELOC ZOK [Interacting]
     Active Substance: METOPROLOL SUCCINATE
     Indication: ESSENTIAL HYPERTENSION
     Route: 048
     Dates: end: 20150311

REACTIONS (9)
  - Shock haemorrhagic [Recovering/Resolving]
  - Haemodynamic instability [Recovering/Resolving]
  - Melaena [Recovering/Resolving]
  - Oesophagitis [Recovering/Resolving]
  - Drug interaction [Unknown]
  - Duodenal ulcer [Recovering/Resolving]
  - Acute kidney injury [Recovering/Resolving]
  - Haemorrhagic erosive gastritis [Recovering/Resolving]
  - Haemorrhagic anaemia [Recovering/Resolving]

NARRATIVE: CASE EVENT DATE: 20150311
